FAERS Safety Report 8080941-7 (Version None)
Quarter: 2012Q1

REPORT INFORMATION
  Report Type: 
  Country: None (occurrence: None)
  Receive Date: 20120130
  Receipt Date: 20120120
  Transmission Date: 20120608
  Serious: Yes (Other)
  Sender: FDA-Public Use
  Company Number: FR-JNJFOC-20111010449

PATIENT
  Age: 77 Year
  Sex: Male

DRUGS (6)
  1. ANDROCUR [Concomitant]
     Indication: HORMONE THERAPY
     Route: 065
  2. ABIRATERONE ACETATE [Suspect]
     Route: 048
  3. ENANTONE LP [Concomitant]
     Indication: HORMONE THERAPY
     Route: 065
  4. ABIRATERONE ACETATE [Suspect]
     Indication: PROSTATE CANCER
     Route: 048
     Dates: start: 20110628, end: 20111019
  5. ZOMETA [Concomitant]
     Indication: PRODUCT USED FOR UNKNOWN INDICATION
     Route: 065
  6. PREDNISONE TAB [Suspect]
     Indication: PROSTATE CANCER
     Route: 065

REACTIONS (4)
  - PROSTATIC SPECIFIC ANTIGEN INCREASED [None]
  - GENERAL PHYSICAL HEALTH DETERIORATION [None]
  - ANAEMIA [None]
  - OEDEMA [None]
